FAERS Safety Report 22907760 (Version 6)
Quarter: 2025Q1

REPORT INFORMATION
  Report Type: Spontaneous
  Country: US (occurrence: US)
  Receive Date: 20230905
  Receipt Date: 20250106
  Transmission Date: 20250409
  Serious: No
  Sender: PFIZER
  Company Number: US-PFIZER INC-2017074315

PATIENT
  Age: 53 Year
  Sex: Female

DRUGS (9)
  1. PREMARIN [Suspect]
     Active Substance: ESTROGENS, CONJUGATED
     Indication: Dysplasia
     Dosage: 1 DF, DAILY
     Route: 048
     Dates: start: 20091015
  2. PREMARIN [Suspect]
     Active Substance: ESTROGENS, CONJUGATED
     Indication: Neoplasm malignant
  3. PREMARIN [Suspect]
     Active Substance: ESTROGENS, CONJUGATED
     Indication: Prophylaxis
  4. ACYCLOVIR [Concomitant]
     Active Substance: ACYCLOVIR
     Dosage: 1 DF, DAILY
     Dates: start: 20150930
  5. AMOXICILLIN [Concomitant]
     Active Substance: AMOXICILLIN
     Dosage: 500 MG, 3X/DAY (10 DAYS)
     Route: 048
     Dates: start: 20170111
  6. ASPIRIN [Concomitant]
     Active Substance: ASPIRIN
     Dosage: 1 DF, ALTERNATE DAY (QOD)
     Route: 048
     Dates: start: 20070601
  7. ATIVAN [Concomitant]
     Active Substance: LORAZEPAM
     Dosage: 1 DF, 2X/DAY
     Dates: start: 20160310
  8. CALCIUM\VITAMIN D [Concomitant]
     Active Substance: CALCIUM\VITAMIN D
     Dosage: 1 DF, DAILY (CALCIUM-600MG, COLECALCIFEROL-200MG)
     Route: 048
     Dates: start: 20070601
  9. TENORMIN [Concomitant]
     Active Substance: ATENOLOL
     Dosage: 1 DF DAILY
     Route: 048
     Dates: start: 20130110

REACTIONS (3)
  - Hyperhidrosis [Unknown]
  - Off label use [Unknown]
  - Drug effective for unapproved indication [Unknown]

NARRATIVE: CASE EVENT DATE: 20091015
